FAERS Safety Report 8124726 (Version 7)
Quarter: 2013Q1

REPORT INFORMATION
  Report Type: Spontaneous
  Country: NZ (occurrence: NZ)
  Receive Date: 20110907
  Receipt Date: 20130218
  Transmission Date: 20140127
  Serious: Yes (Hospitalization, Other)
  Sender: FDA-Public Use
  Company Number: PHHY2011NZ78011

PATIENT
  Age: 23 Year
  Sex: Male

DRUGS (3)
  1. TASIGNA [Suspect]
     Indication: CHRONIC MYELOID LEUKAEMIA
     Dosage: 200 MG, BID
     Route: 048
     Dates: start: 20110707
  2. TASIGNA [Suspect]
     Dosage: 400 MG, BID
     Route: 048
     Dates: start: 201108, end: 20120424
  3. TASIGNA [Suspect]
     Dosage: 600 MG,

REACTIONS (14)
  - Electrocardiogram QT prolonged [Recovered/Resolved]
  - Loss of consciousness [Recovered/Resolved]
  - Non-cardiac chest pain [Recovered/Resolved]
  - Gastrooesophageal reflux disease [Recovered/Resolved]
  - Abdominal pain [Recovered/Resolved]
  - Nausea [Recovered/Resolved]
  - Infection [Recovered/Resolved]
  - Fatigue [Recovered/Resolved]
  - Loss of libido [Recovered/Resolved]
  - Abdominal distension [Recovered/Resolved]
  - Temperature intolerance [Recovered/Resolved]
  - Weight increased [Recovered/Resolved]
  - Pollakiuria [Unknown]
  - Headache [Recovering/Resolving]
